FAERS Safety Report 6149069-7 (Version None)
Quarter: 2009Q2

REPORT INFORMATION
  Report Type: 
  Country: None (occurrence: None)
  Receive Date: 20090407
  Receipt Date: 20090327
  Transmission Date: 20091009
  Serious: Yes (Hospitalization)
  Sender: FDA-Public Use
  Company Number: WAES 0805USA04831

PATIENT
  Age: 73 Year
  Sex: Male

DRUGS (19)
  1. CAP VORINOSTAT [Suspect]
     Indication: NON-SMALL CELL LUNG CANCER
     Dosage: 400 MG/DAILY, PO
     Route: 048
     Dates: start: 20080331, end: 20080413
  2. CAP VORINOSTAT [Suspect]
     Indication: NON-SMALL CELL LUNG CANCER
     Dosage: 400 MG/DAILY, PO
     Route: 048
     Dates: start: 20080422, end: 20080505
  3. CAP VORINOSTAT [Suspect]
     Indication: NON-SMALL CELL LUNG CANCER
     Dosage: 400 MG/DAILY, PO
     Route: 048
     Dates: start: 20080513, end: 20080526
  4. PACLITAXEL [Suspect]
     Indication: NON-SMALL CELL LUNG CANCER
     Dosage: 420 MG/1X, IV; 400 MG/1X, IV
     Route: 042
     Dates: start: 20080404, end: 20080404
  5. PACLITAXEL [Suspect]
     Indication: NON-SMALL CELL LUNG CANCER
     Dosage: 420 MG/1X, IV; 400 MG/1X, IV
     Route: 042
     Dates: start: 20080422, end: 20080422
  6. CARBOPLATIN [Suspect]
     Indication: NON-SMALL CELL LUNG CANCER
     Dosage: 666 MG/1X, IV; 700 MG/1X, IV; 648 MG/1X, IV
     Route: 042
     Dates: start: 20080404, end: 20080404
  7. CARBOPLATIN [Suspect]
     Indication: NON-SMALL CELL LUNG CANCER
     Dosage: 666 MG/1X, IV; 700 MG/1X, IV; 648 MG/1X, IV
     Route: 042
     Dates: start: 20080422, end: 20080422
  8. CARBOPLATIN [Suspect]
     Indication: NON-SMALL CELL LUNG CANCER
     Dosage: 666 MG/1X, IV; 700 MG/1X, IV; 648 MG/1X, IV
     Route: 042
     Dates: start: 20080513, end: 20080513
  9. DIFFLAM [Concomitant]
  10. PRO-BANTHINE [Concomitant]
  11. ALBUTEROL [Concomitant]
  12. CHLORPHENIRAMINE MALEATE [Concomitant]
  13. CIMETIDINE HCL [Concomitant]
  14. CIPROFLOXACIN [Concomitant]
  15. DEXAMETHASONE TAB [Concomitant]
  16. DOMPERIDONE [Concomitant]
  17. FLUCONAZOLE [Concomitant]
  18. OMEPRAZOLE [Concomitant]
  19. ONDANSETRON [Concomitant]

REACTIONS (12)
  - ASTHENIA [None]
  - BLOOD ALBUMIN DECREASED [None]
  - BLOOD PRESSURE DIASTOLIC DECREASED [None]
  - BLOOD SODIUM DECREASED [None]
  - DIARRHOEA [None]
  - FEBRILE NEUTROPENIA [None]
  - NEUTROPENIC SEPSIS [None]
  - PLATELET COUNT DECREASED [None]
  - PNEUMONIA [None]
  - PULMONARY EMBOLISM [None]
  - TROPONIN I INCREASED [None]
  - WHITE BLOOD CELL COUNT DECREASED [None]
